FAERS Safety Report 8414027-6 (Version None)
Quarter: 2012Q2

REPORT INFORMATION
  Report Type: 
  Country: None (occurrence: None)
  Receive Date: 20120605
  Receipt Date: 20120530
  Transmission Date: 20120825
  Serious: No
  Sender: FDA-Public Use
  Company Number: US-PFIZER INC-2012117475

PATIENT
  Sex: Male
  Weight: 72.562 kg

DRUGS (1)
  1. XALATAN [Suspect]
     Indication: GLAUCOMA
     Dosage: UNK, IN EACH EYE, 1X/DAY
     Route: 047

REACTIONS (1)
  - INTRAOCULAR PRESSURE INCREASED [None]
